FAERS Safety Report 16690699 (Version 2)
Quarter: 2019Q3

REPORT INFORMATION
  Report Type: Report from Study
  Country: CA (occurrence: CA)
  Receive Date: 20190811
  Receipt Date: 20190909
  Transmission Date: 20191004
  Serious: Yes (Life-Threatening)
  Sender: FDA-Public Use
  Company Number: PHHY2019CA185838

PATIENT
  Age: 24 Year
  Sex: Female

DRUGS (1)
  1. ERELZI [Suspect]
     Active Substance: ETANERCEPT-SZZS
     Indication: ANKYLOSING SPONDYLITIS
     Dosage: 50 MG, QW
     Route: 058
     Dates: start: 20190607

REACTIONS (14)
  - Suicidal ideation [Unknown]
  - Gait disturbance [Unknown]
  - Malaise [Unknown]
  - Immune system disorder [Unknown]
  - Nausea [Unknown]
  - Malabsorption [Not Recovered/Not Resolved]
  - Depression [Unknown]
  - General physical health deterioration [Unknown]
  - Liver disorder [Not Recovered/Not Resolved]
  - Back pain [Not Recovered/Not Resolved]
  - Vomiting [Unknown]
  - Mental disorder [Unknown]
  - Blood iron decreased [Not Recovered/Not Resolved]
  - Muscular weakness [Unknown]

NARRATIVE: CASE EVENT DATE: 201906
